FAERS Safety Report 13211148 (Version 2)
Quarter: 2017Q1

REPORT INFORMATION
  Report Type: Spontaneous
  Country: US (occurrence: US)
  Receive Date: 20170210
  Receipt Date: 20170213
  Transmission Date: 20170428
  Serious: No
  Sender: FDA-Public Use
  Company Number: US-PFIZER INC-2017058140

PATIENT
  Age: 49 Year
  Sex: Male
  Weight: 79 kg

DRUGS (2)
  1. NEURONTIN [Suspect]
     Active Substance: GABAPENTIN
     Indication: NEUROPATHY PERIPHERAL
     Dosage: UNK UNK, DAILY 15000 MG TO 18000MG A DAY (FOR AT LEAST 5 YEARS)
     Dates: start: 2001
  2. NEURONTIN [Suspect]
     Active Substance: GABAPENTIN
     Indication: NERVE INJURY
     Dosage: 400MG CAPSULES, 3 CAPSULES, FOUR TIMES A DAY
     Route: 048
     Dates: end: 2017

REACTIONS (5)
  - Product use issue [Unknown]
  - Prescribed overdose [Unknown]
  - Ocular icterus [Not Recovered/Not Resolved]
  - Liver function test increased [Unknown]
  - Yellow skin [Not Recovered/Not Resolved]

NARRATIVE: CASE EVENT DATE: 2017
